FAERS Safety Report 14147668 (Version 2)
Quarter: 2018Q2

REPORT INFORMATION
  Report Type: Report from Study
  Country: AR (occurrence: AR)
  Receive Date: 20171031
  Receipt Date: 20180518
  Transmission Date: 20180711
  Serious: Yes (Death, Hospitalization, Other)
  Sender: FDA-Public Use
  Company Number: DE-ACTELION-A-US2017-161831

PATIENT
  Age: 42 Year
  Sex: Female

DRUGS (2)
  1. VENTAVIS [Suspect]
     Active Substance: ILOPROST
     Indication: PULMONARY HYPERTENSION
     Dosage: UNK
     Route: 055
     Dates: start: 20140224, end: 201709
  2. AMBRISENTAN [Concomitant]
     Active Substance: AMBRISENTAN
     Dosage: UNK
     Dates: start: 2016

REACTIONS (9)
  - Enterocolitis infectious [Not Recovered/Not Resolved]
  - Liver disorder [Not Recovered/Not Resolved]
  - Hepatic failure [Fatal]
  - Dyspnoea [Recovering/Resolving]
  - Blood bilirubin abnormal [Recovering/Resolving]
  - Blood glucose abnormal [Recovering/Resolving]
  - Pulmonary hypertension [Not Recovered/Not Resolved]
  - Cirrhosis alcoholic [Fatal]
  - Fatigue [Not Recovered/Not Resolved]

NARRATIVE: CASE EVENT DATE: 201612
